FAERS Safety Report 20803065 (Version 1)
Quarter: 2022Q2

REPORT INFORMATION
  Report Type: Spontaneous
  Country: HU (occurrence: None)
  Receive Date: 20220509
  Receipt Date: 20220509
  Transmission Date: 20220721
  Serious: Yes (Other)
  Sender: FDA-Public Use
  Company Number: HU-ROCHE-3092600

PATIENT
  Age: 27 Year
  Sex: Male
  Weight: 56 kg

DRUGS (5)
  1. RIVOTRIL [Suspect]
     Active Substance: CLONAZEPAM
     Indication: Panic disorder
     Dosage: 0.5 MG, Q8HR ((ONE DOSE CONTAINS 0.5 MG CLONAZEPAM, DOSAGE: 3 TABLETS PER DAY, DAILY DOSE: 1.5 MG))
     Route: 048
     Dates: start: 20211214
  2. RIVOTRIL [Suspect]
     Active Substance: CLONAZEPAM
     Indication: Anxiety
  3. CIPRALEX [Suspect]
     Active Substance: ESCITALOPRAM OXALATE
     Indication: Panic disorder
     Dosage: 10 MG, DAILY ((ONE DOSE CONTAINS 10 MG ESCITALOPRAM, DOSAGE 1 TABLET PER DAY, DAILY DOSE: 10 MG; MAH
     Route: 048
     Dates: start: 20211214
  4. CIPRALEX [Suspect]
     Active Substance: ESCITALOPRAM OXALATE
     Indication: Anxiety
  5. COMIRNATY [Suspect]
     Active Substance: TOZINAMERAN
     Indication: COVID-19 immunisation
     Dosage: 0.3 ML, 1 TOTAL (ONE DOSE (0.3 ML)CONTAINS TOZINAMERAN (COVID-19 MRNA VACCINE EMBEDDED IN LIPID NANO
     Route: 030
     Dates: start: 20211205, end: 20211205

REACTIONS (3)
  - Haematochezia [Recovered/Resolved]
  - Red blood cells urine positive [Recovered/Resolved]
  - Pyrexia [Unknown]

NARRATIVE: CASE EVENT DATE: 20220101
